FAERS Safety Report 24804703 (Version 2)
Quarter: 2025Q1

REPORT INFORMATION
  Report Type: Spontaneous
  Country: HK (occurrence: HK)
  Receive Date: 20250103
  Receipt Date: 20250117
  Transmission Date: 20250408
  Serious: Yes (Life-Threatening, Hospitalization)
  Sender: MYLAN
  Company Number: HK-MYLANLABS-2025M1000638

PATIENT
  Age: 16 Year
  Sex: Female

DRUGS (13)
  1. AMLODIPINE [Suspect]
     Active Substance: AMLODIPINE BESYLATE
     Indication: Product used for unknown indication
     Route: 065
  2. EPINEPHRINE [Suspect]
     Active Substance: EPINEPHRINE
     Indication: Hypotension
     Dosage: 0.35 MICROGRAM/KILOGRAM, QMINUTE
     Route: 065
  3. NOREPINEPHRINE BITARTRATE [Suspect]
     Active Substance: NOREPINEPHRINE BITARTRATE
     Indication: Hypotension
     Dosage: 0.3 MICROGRAM/KILOGRAM, QMINUTE
     Route: 065
  4. VASOPRESSIN [Suspect]
     Active Substance: VASOPRESSIN
     Indication: Hypotension
     Dosage: 0.03 INTERNATIONAL UNIT/KILOGRAM, QH
     Route: 065
  5. ACTIVATED CHARCOAL [Suspect]
     Active Substance: ACTIVATED CHARCOAL
     Indication: Toxicity to various agents
     Route: 065
  6. SODIUM CHLORIDE [Suspect]
     Active Substance: SODIUM CHLORIDE
     Indication: Metabolic acidosis
     Route: 042
  7. SODIUM CHLORIDE [Suspect]
     Active Substance: SODIUM CHLORIDE
     Indication: Hypotension
  8. INSULIN ASPART [Suspect]
     Active Substance: INSULIN ASPART
     Indication: Hypotension
     Dosage: 2 INTERNATIONAL UNIT/KILOGRAM, QH
     Route: 065
  9. METHYLENE BLUE [Suspect]
     Active Substance: METHYLENE BLUE
     Indication: Hypotension
     Route: 065
  10. GLUCAGON [Suspect]
     Active Substance: GLUCAGON
     Indication: Hypotension
     Route: 042
  11. FAT EMULSION NOS [Suspect]
     Active Substance: EGG PHOSPHOLIPIDS\SAFFLOWER OIL\SOYBEAN OIL
     Indication: Hypotension
     Route: 042
  12. HYDROCORTISONE [Suspect]
     Active Substance: HYDROCORTISONE
     Indication: Hypotension
     Route: 065
  13. CALCIUM CHLORIDE [Concomitant]
     Active Substance: CALCIUM CHLORIDE
     Indication: Hypotension
     Route: 065

REACTIONS (6)
  - Suicide attempt [Recovering/Resolving]
  - Intentional overdose [Recovering/Resolving]
  - Toxicity to various agents [Recovering/Resolving]
  - Hypotension [Recovering/Resolving]
  - Metabolic acidosis [Recovering/Resolving]
  - Drug ineffective [Unknown]
